FAERS Safety Report 8268835-5 (Version None)
Quarter: 2012Q2

REPORT INFORMATION
  Report Type: 
  Country: None (occurrence: None)
  Receive Date: 20120409
  Receipt Date: 20120409
  Transmission Date: 20120825
  Serious: No
  Sender: FDA-Public Use
  Company Number: None

PATIENT
  Age: 60 Year
  Sex: Female
  Weight: 85.275 kg

DRUGS (1)
  1. LIPITOR [Suspect]
     Indication: BLOOD CHOLESTEROL INCREASED
     Dosage: 1 TABLED
     Route: 048
     Dates: start: 20120314, end: 20120331

REACTIONS (9)
  - ARTHRALGIA [None]
  - VULVOVAGINAL BURNING SENSATION [None]
  - DISCOMFORT [None]
  - POLLAKIURIA [None]
  - VULVOVAGINAL PRURITUS [None]
  - ABDOMINAL PAIN [None]
  - PYREXIA [None]
  - PAIN [None]
  - CONSTIPATION [None]
